FAERS Safety Report 4635925-5 (Version None)
Quarter: 2005Q2

REPORT INFORMATION
  Report Type: 
  Country: None (occurrence: None)
  Receive Date: 20050413
  Receipt Date: 20050404
  Transmission Date: 20051028
  Serious: Yes (Hospitalization)
  Sender: FDA-Public Use
  Company Number: 2005S1000016

PATIENT
  Age: 63 Year
  Sex: Female
  Weight: 79.1 kg

DRUGS (12)
  1. CUBICIN [Suspect]
     Indication: OSTEOMYELITIS
     Dosage: 475 MG; Q24H; IV
     Route: 042
     Dates: start: 20050106, end: 20050126
  2. RIFAMPIN [Concomitant]
  3. DIAVAN [Concomitant]
  4. PEPCID [Concomitant]
  5. COLACE [Concomitant]
  6. PAXIL [Concomitant]
  7. SOMA [Concomitant]
  8. VICODIN [Concomitant]
  9. FOLIC ACID [Concomitant]
  10. THYROID TAB [Concomitant]
  11. VOLTAREN [Concomitant]
  12. ALLEGRA [Concomitant]

REACTIONS (8)
  - FEELING ABNORMAL [None]
  - HYPERSENSITIVITY [None]
  - HYPOXIA [None]
  - LUNG INFILTRATION [None]
  - LYMPHOCYTE PERCENTAGE DECREASED [None]
  - MACROPHAGE ACTIVATION [None]
  - MONOCYTE PERCENTAGE DECREASED [None]
  - PULMONARY EOSINOPHILIA [None]
